FAERS Safety Report 25423942 (Version 2)
Quarter: 2025Q2

REPORT INFORMATION
  Report Type: Spontaneous
  Country: SI (occurrence: SI)
  Receive Date: 20250611
  Receipt Date: 20250616
  Transmission Date: 20250716
  Serious: Yes (Hospitalization, Other)
  Sender: NOVARTIS
  Company Number: SI-002147023-NVSC2025SI092972

PATIENT
  Age: 62 Year
  Sex: Male

DRUGS (4)
  1. LEQVIO [Suspect]
     Active Substance: INCLISIRAN SODIUM
     Indication: Dyslipidaemia
     Route: 058
  2. ENTRESTO [Concomitant]
     Active Substance: SACUBITRIL\VALSARTAN
     Indication: Product used for unknown indication
     Route: 065
  3. EZETIMIBE\ROSUVASTATIN [Concomitant]
     Active Substance: EZETIMIBE\ROSUVASTATIN
     Indication: Product used for unknown indication
     Route: 065
     Dates: start: 202310
  4. EZETIMIBE\ROSUVASTATIN [Concomitant]
     Active Substance: EZETIMIBE\ROSUVASTATIN
     Route: 065
     Dates: start: 202407

REACTIONS (6)
  - Dyspnoea [Unknown]
  - Peripheral swelling [Unknown]
  - Tachycardia [Unknown]
  - Cardiac failure [Recovering/Resolving]
  - Dyslipidaemia [Recovering/Resolving]
  - Laboratory test abnormal [Unknown]
